FAERS Safety Report 9705915 (Version 1)
Quarter: 2013Q4

REPORT INFORMATION
  Report Type: Spontaneous
  Country: BE (occurrence: BE)
  Receive Date: 20131122
  Receipt Date: 20131122
  Transmission Date: 20140711
  Serious: Yes (Other)
  Sender: FDA-Public Use
  Company Number: BE-B.I. PHARMACEUTICALS,INC./RIDGEFIELD-2013-BI-38269BL

PATIENT
  Age: 89 Year
  Sex: Male
  Weight: 64 kg

DRUGS (7)
  1. PRADAXA [Suspect]
     Indication: ANTICOAGULANT THERAPY
     Dosage: 220 MG
     Route: 048
     Dates: start: 20130703, end: 20130901
  2. BURINEX [Concomitant]
     Dosage: 1 MG
     Route: 048
     Dates: start: 20100101
  3. EMCONCOR MINOR [Concomitant]
     Dosage: 2.5 MG
     Dates: start: 20100101
  4. INSULINE NOVO MIX [Concomitant]
     Dosage: 20 IU IN THE MORNING/ 8 IU AT 5 PM
     Dates: start: 20100101
  5. LANOXIN [Concomitant]
     Dosage: 125 MG
     Dates: start: 20100101
  6. METFORMAX [Concomitant]
     Dosage: 1275 MG
  7. ZESTORETIC [Concomitant]
     Dates: start: 20130101

REACTIONS (4)
  - Hepatic failure [Not Recovered/Not Resolved]
  - Yellow skin [Not Recovered/Not Resolved]
  - Blood bilirubin increased [Not Recovered/Not Resolved]
  - International normalised ratio increased [Not Recovered/Not Resolved]
